FAERS Safety Report 7898753 (Version 3)
Quarter: 2012Q4

REPORT INFORMATION
  Report Type: 
  Country: US (occurrence: US)
  Receive Date: 20110414
  Receipt Date: 20121002
  Transmission Date: 20130627
  Serious: Yes (Life-Threatening, Hospitalization)
  Sender: FDA-Public Use
  Company Number: US-BAYER-2011-032110

PATIENT
  Age: 35 Year
  Sex: Female

DRUGS (11)
  1. YASMIN [Suspect]
     Indication: ORAL CONTRACEPTION
     Dosage: UNK
     Dates: start: 200511, end: 200709
  2. YAZ [Suspect]
     Indication: ORAL CONTRACEPTION
     Dosage: UNK
     Dates: start: 200709, end: 200902
  3. SYNTHROID [Concomitant]
     Indication: THYROIDECTOMY
     Dosage: UNK UNK, CONT
     Dates: start: 1996
  4. NSAID^S [Concomitant]
  5. PRESCRIPTION DIET MEDICATION [Concomitant]
  6. DILAUDID [Concomitant]
     Indication: HEADACHE
  7. DECADRON [Concomitant]
  8. DOCUSATE [Concomitant]
  9. VICODIN [Concomitant]
  10. PREVACID [Concomitant]
  11. SENOKOT [Concomitant]

REACTIONS (5)
  - Cerebral venous thrombosis [Recovering/Resolving]
  - Cerebrovascular accident [None]
  - Thrombosis [None]
  - Injury [None]
  - Convulsion [None]
